FAERS Safety Report 6042422-1 (Version None)
Quarter: 2009Q1

REPORT INFORMATION
  Report Type: 
  Country: None (occurrence: None)
  Receive Date: 20090116
  Receipt Date: 20090107
  Transmission Date: 20090719
  Serious: Yes (Death, Hospitalization)
  Sender: FDA-Public Use
  Company Number: JP-PFIZER INC-2009151807

PATIENT

DRUGS (12)
  1. LINEZOLID [Suspect]
     Indication: SEPSIS
     Dosage: 600 MG, 2X/DAY
     Route: 042
     Dates: start: 20080406, end: 20080412
  2. LINEZOLID [Suspect]
     Dosage: 600 MG, 2X/DAY
     Route: 042
     Dates: start: 20080414, end: 20080416
  3. VANCOMYCIN [Concomitant]
  4. MEROPEN [Concomitant]
     Dates: start: 20080406, end: 20080407
  5. MICAFUNGIN SODIUM [Concomitant]
     Dates: end: 20080407
  6. DECADRON [Concomitant]
     Dates: start: 20080406, end: 20080409
  7. METILON [Concomitant]
     Dates: end: 20080406
  8. LASIX [Concomitant]
     Dates: start: 20080406, end: 20080410
  9. HUMULIN R [Concomitant]
     Dates: start: 20080406, end: 20080410
  10. MEYLON [Concomitant]
     Dates: start: 20080408, end: 20080410
  11. ACYCLOVIR [Concomitant]
     Dates: start: 20080406, end: 20080410
  12. IMMUNE GLOBULIN INTRAVENOUS (HUMAN) [Concomitant]
     Dates: start: 20080406, end: 20080408

REACTIONS (4)
  - ANAEMIA [None]
  - CARDIO-RESPIRATORY ARREST [None]
  - PLATELET COUNT DECREASED [None]
  - WHITE BLOOD CELL COUNT DECREASED [None]
